FAERS Safety Report 4849791-6 (Version None)
Quarter: 2005Q4

REPORT INFORMATION
  Report Type: 
  Country: None (occurrence: None)
  Receive Date: 20051115
  Receipt Date: 20051014
  Transmission Date: 20060501
  Serious: No
  Sender: FDA-Public Use
  Company Number: 421257

PATIENT
  Age: 47 Year
  Sex: Male

DRUGS (2)
  1. PEGASYS [Suspect]
     Indication: HEPATITIS C VIRUS
     Dosage: 1 PER WEEK SUBCUTANEOUS
     Route: 058
     Dates: start: 20050815, end: 20051014
  2. COPEGUS [Suspect]
     Indication: HEPATITIS C VIRUS
     Dosage: 1000 MG DAILY ORAL
     Route: 048
     Dates: start: 20050815, end: 20051014

REACTIONS (3)
  - CHROMATURIA [None]
  - LOCALISED INFECTION [None]
  - PYREXIA [None]
